FAERS Safety Report 20579310 (Version 1)
Quarter: 2022Q1

REPORT INFORMATION
  Report Type: Spontaneous
  Country: AE (occurrence: AE)
  Receive Date: 20220310
  Receipt Date: 20220310
  Transmission Date: 20220423
  Serious: Yes (Hospitalization, Other)
  Sender: FDA-Public Use
  Company Number: AE-INSUD PHARMA-2203AE00932

PATIENT

DRUGS (4)
  1. TESTOSTERONE [Suspect]
     Active Substance: TESTOSTERONE
     Indication: Muscle building therapy
     Dosage: UNKNOWN
     Route: 065
  2. DROMOSTANOLONE [Suspect]
     Active Substance: DROMOSTANOLONE
     Indication: Muscle building therapy
     Dosage: UNKNOWN
     Route: 065
  3. STANOZOLOL [Suspect]
     Active Substance: STANOZOLOL
     Indication: Muscle building therapy
     Dosage: UNKNOWN
     Route: 065
  4. LEVOCETIRIZINE [Concomitant]
     Active Substance: LEVOCETIRIZINE
     Indication: Hypersensitivity

REACTIONS (15)
  - Nephropathy [Recovering/Resolving]
  - Acute kidney injury [Unknown]
  - Drug-induced liver injury [Unknown]
  - Cholestatic liver injury [Recovering/Resolving]
  - Hyperbilirubinaemia [Recovering/Resolving]
  - Fatigue [Unknown]
  - Abdominal pain [Unknown]
  - Ocular icterus [Unknown]
  - Faeces pale [Unknown]
  - Chromaturia [Unknown]
  - Jaundice [Unknown]
  - Abdominal tenderness [Unknown]
  - Skin abrasion [Unknown]
  - Skin haemorrhage [Unknown]
  - Haematoma [Unknown]
